FAERS Safety Report 20951561 (Version 1)
Quarter: 2022Q2

REPORT INFORMATION
  Report Type: Spontaneous
  Country: CN (occurrence: CN)
  Receive Date: 20220613
  Receipt Date: 20220613
  Transmission Date: 20220720
  Serious: Yes (Other)
  Sender: FDA-Public Use
  Company Number: CN-PFIZER INC-202200824680

PATIENT
  Age: 65 Year
  Sex: Male

DRUGS (3)
  1. VIZIMPRO [Suspect]
     Active Substance: DACOMITINIB
     Indication: Lung neoplasm malignant
     Dosage: 3 DF, DAILY
     Route: 048
     Dates: start: 20220314
  2. VIZIMPRO [Suspect]
     Active Substance: DACOMITINIB
     Dosage: 1.5 DF, DAILY
     Route: 048
  3. VIZIMPRO [Suspect]
     Active Substance: DACOMITINIB
     Dosage: 3 DF, DAILY
     Route: 048

REACTIONS (8)
  - Laryngeal haemorrhage [Recovering/Resolving]
  - Oral pruritus [Recovering/Resolving]
  - Dry mouth [Recovering/Resolving]
  - Oral pustule [Recovering/Resolving]
  - Paronychia [Recovering/Resolving]
  - Mouth haemorrhage [Recovering/Resolving]
  - Mouth swelling [Recovering/Resolving]
  - Epistaxis [Recovering/Resolving]
